FAERS Safety Report 7238088-5 (Version None)
Quarter: 2011Q1

REPORT INFORMATION
  Report Type: 
  Country: None (occurrence: None)
  Receive Date: 20110121
  Receipt Date: 20110117
  Transmission Date: 20110831
  Serious: Yes (Other)
  Sender: FDA-Public Use
  Company Number: B0695091A

PATIENT
  Age: 17 Year
  Sex: Male

DRUGS (3)
  1. VENTOLIN [Suspect]
     Indication: ASTHMATIC CRISIS
     Route: 055
     Dates: start: 20101021, end: 20101021
  2. TETRAHYDROCANNABINOL [Concomitant]
     Indication: PRODUCT USED FOR UNKNOWN INDICATION
     Route: 065
  3. VENTOLIN [Suspect]
     Route: 058
     Dates: start: 20101021, end: 20101021

REACTIONS (2)
  - DISORIENTATION [None]
  - HALLUCINATION, VISUAL [None]
